FAERS Safety Report 8610543-2 (Version None)
Quarter: 2012Q3

REPORT INFORMATION
  Report Type: 
  Country: None (occurrence: None)
  Receive Date: 20120822
  Receipt Date: 20120813
  Transmission Date: 20120928
  Serious: Yes (Other)
  Sender: FDA-Public Use
  Company Number: CA-JNJFOC-20120806729

PATIENT
  Sex: Female
  Weight: 72 kg

DRUGS (7)
  1. REMICADE [Suspect]
     Indication: CROHN'S DISEASE
     Route: 042
     Dates: start: 20101101
  2. PREDNISONE TAB [Concomitant]
     Route: 048
  3. FLOVENT [Concomitant]
     Route: 065
  4. MESALAMINE [Concomitant]
     Dosage: 1.2
     Route: 065
  5. ORTHO TRI-CYCLEN [Concomitant]
     Route: 065
  6. VENTOLIN [Concomitant]
     Dosage: PRN
     Route: 065
  7. PREDNISONE TAB [Concomitant]
     Route: 048

REACTIONS (2)
  - DIARRHOEA [None]
  - ABDOMINAL PAIN [None]
